FAERS Safety Report 4784356-6 (Version None)
Quarter: 2005Q3

REPORT INFORMATION
  Report Type: 
  Country: None (occurrence: None)
  Receive Date: 20050929
  Receipt Date: 20050929
  Transmission Date: 20060218
  Serious: Yes (Other)
  Sender: FDA-Public Use
  Company Number: None

PATIENT
  Age: 74 Year
  Sex: Male
  Weight: 55.5 kg

DRUGS (12)
  1. WARFARIN [Suspect]
     Indication: AORTIC VALVE REPLACEMENT
     Dosage: VARIOUS, VARIOUS, ORAL
     Route: 048
  2. FLUTICAS 250/SALMETEROL 50 INHL DISK 60 [Concomitant]
  3. ALBUTEROL SULFATE AND IPRATROPIUM BROMIDE [Concomitant]
  4. PENTOXIFYLLINE [Concomitant]
  5. PHYTONADIONE [Concomitant]
  6. CAMPHOR 0.5/MENTHOL [Concomitant]
  7. THEOPHYLLINE (INWOOD) [Concomitant]
  8. CALCIUM CARBONATE [Concomitant]
  9. FERROUS SO4 [Concomitant]
  10. TERBINAFINE HYDROCHLORIDE CREAM 1% [Concomitant]
  11. LOVASTATIN [Concomitant]
  12. FLUOROURACIL [Concomitant]

REACTIONS (1)
  - INTERNATIONAL NORMALISED RATIO INCREASED [None]
